FAERS Safety Report 4940005-5 (Version None)
Quarter: 2006Q1

REPORT INFORMATION
  Report Type: 
  Country: None (occurrence: None)
  Receive Date: 20060307
  Receipt Date: 20060221
  Transmission Date: 20060701
  Serious: Yes (Hospitalization)
  Sender: FDA-Public Use
  Company Number: SUS1-2005-00809

PATIENT
  Age: 83 Year
  Sex: Female

DRUGS (1)
  1. PENTASA [Suspect]
     Dosage: 250 MG - 4 CAPS TWICE DAILY, ORAL
     Route: 048
     Dates: start: 20050930, end: 20050101

REACTIONS (2)
  - CARDIAC FAILURE CONGESTIVE [None]
  - PHARMACEUTICAL PRODUCT COMPLAINT [None]
